FAERS Safety Report 10231507 (Version 3)
Quarter: 2014Q2

REPORT INFORMATION
  Report Type: Report from Study
  Country: SA (occurrence: SA)
  Receive Date: 20140611
  Receipt Date: 20140619
  Transmission Date: 20141212
  Serious: Yes (Life-Threatening, Hospitalization)
  Sender: FDA-Public Use
  Company Number: SA-ELI_LILLY_AND_COMPANY-SA201406003573

PATIENT
  Age: 10 Year
  Sex: Female
  Weight: 37 kg

DRUGS (2)
  1. PRASUGREL HYDROCHLORIDE [Suspect]
     Indication: SICKLE CELL ANAEMIA
     Dosage: UNK UNK, QD
     Route: 048
     Dates: start: 20140331, end: 20140606
  2. PARACETAMOL [Concomitant]
     Indication: PYREXIA
     Dosage: UNK
     Dates: start: 20140603, end: 20140606

REACTIONS (3)
  - Convulsion [Not Recovered/Not Resolved]
  - Thrombocytopenia [Not Recovered/Not Resolved]
  - Anaemia [Not Recovered/Not Resolved]
